FAERS Safety Report 5244122-4 (Version None)
Quarter: 2007Q1

REPORT INFORMATION
  Report Type: 
  Country: None (occurrence: None)
  Receive Date: 20061201
  Receipt Date: 20060818
  Transmission Date: 20070707
  Serious: No
  Sender: FDA-Public Use
  Company Number: 2006PV019681

PATIENT
  Age: 58 Year
  Sex: Female
  Weight: 148.7798 kg

DRUGS (6)
  1. BYETTA [Suspect]
     Indication: DIABETES MELLITUS
     Dosage: 10 MCG; SC
     Route: 058
  2. BYETTA [Suspect]
     Indication: WEIGHT DECREASED
     Dosage: 10 MCG; SC
     Route: 058
  3. BYETTA [Suspect]
     Indication: DIABETES MELLITUS
     Dosage: 10 MCG; 5 MCG; BID; SC
     Route: 058
     Dates: start: 20060501, end: 20060601
  4. BYETTA [Suspect]
     Indication: WEIGHT DECREASED
     Dosage: 10 MCG; 5 MCG; BID; SC
     Route: 058
     Dates: start: 20060501, end: 20060601
  5. BYETTA [Suspect]
     Indication: DIABETES MELLITUS
     Dosage: 10 MCG; 5 MCG; BID; SC
     Route: 058
     Dates: start: 20060601
  6. BYETTA [Suspect]
     Indication: WEIGHT DECREASED
     Dosage: 10 MCG; 5 MCG; BID; SC
     Route: 058
     Dates: start: 20060601

REACTIONS (3)
  - FEELING ABNORMAL [None]
  - NAUSEA [None]
  - VOMITING PROJECTILE [None]
